FAERS Safety Report 11274143 (Version 2)
Quarter: 2015Q3

REPORT INFORMATION
  Report Type: Spontaneous
  Country: TR (occurrence: TR)
  Receive Date: 20150715
  Receipt Date: 20150723
  Transmission Date: 20151125
  Serious: Yes (Death, Other)
  Sender: FDA-Public Use
  Company Number: PHHY2015TR082019

PATIENT
  Age: 20 Day
  Sex: Male
  Weight: 3.2 kg

DRUGS (3)
  1. DIGOXIN. [Suspect]
     Active Substance: DIGOXIN
     Indication: NEONATAL CARDIAC FAILURE
     Route: 065
  2. FUROSEMIDE. [Suspect]
     Active Substance: FUROSEMIDE
     Indication: OEDEMA
     Route: 065
  3. CAPTOPRIL. [Suspect]
     Active Substance: CAPTOPRIL
     Indication: PULMONARY HYPERTENSION
     Route: 065

REACTIONS (4)
  - Sepsis neonatal [Fatal]
  - Neonatal anuria [Unknown]
  - Renal failure neonatal [Unknown]
  - Neonatal multi-organ failure [Fatal]
